FAERS Safety Report 7462104-9 (Version None)
Quarter: 2011Q2

REPORT INFORMATION
  Report Type: 
  Country: None (occurrence: None)
  Receive Date: 20110506
  Receipt Date: 20101102
  Transmission Date: 20111010
  Serious: No
  Sender: FDA-Public Use
  Company Number: US-BAYER-201039586NA

PATIENT
  Age: 45 Year
  Sex: Female

DRUGS (3)
  1. SUDAFED 12 HOUR [Concomitant]
  2. AVELOX [Suspect]
     Indication: SINUSITIS
     Dosage: 400 MG, QD
     Route: 048
     Dates: start: 20101025
  3. MOTRIN [Concomitant]

REACTIONS (5)
  - HEADACHE [None]
  - NAUSEA [None]
  - FLUSHING [None]
  - SOMNOLENCE [None]
  - DIZZINESS [None]
